FAERS Safety Report 13994825 (Version 3)
Quarter: 2017Q4

REPORT INFORMATION
  Report Type: Spontaneous
  Country: US (occurrence: US)
  Receive Date: 20170921
  Receipt Date: 20171125
  Transmission Date: 20180321
  Serious: Yes (Disabling, Other)
  Sender: FDA-Public Use
  Company Number: PHEH2017US030115

PATIENT
  Sex: Male
  Weight: 72 kg

DRUGS (3)
  1. AFINITOR [Suspect]
     Active Substance: EVEROLIMUS
     Indication: RENAL NEOPLASM
     Dosage: UNK UNK, QD
     Route: 048
     Dates: start: 201608
  2. AFINITOR [Suspect]
     Active Substance: EVEROLIMUS
     Dosage: 14 MG, QD
     Route: 048
  3. LENVIMA [Suspect]
     Active Substance: LENVATINIB
     Indication: RENAL CANCER
     Dosage: 14 MG, QD
     Route: 048
     Dates: start: 201608

REACTIONS (12)
  - Diarrhoea [Recovered/Resolved]
  - Dizziness [Unknown]
  - Vomiting [Unknown]
  - Abdominal distension [Unknown]
  - Abdominal pain [Unknown]
  - Nausea [Unknown]
  - Weight decreased [Unknown]
  - Pyrexia [Recovered/Resolved]
  - Mucosal inflammation [Recovered/Resolved]
  - Malignant neoplasm progression [Unknown]
  - Renal neoplasm [Unknown]
  - Dyspnoea [Unknown]
